FAERS Safety Report 9077761 (Version 1)
Quarter: 2013Q1

REPORT INFORMATION
  Report Type: Report from Study
  Country: US (occurrence: US)
  Receive Date: 20130130
  Receipt Date: 20130130
  Transmission Date: 20140127
  Serious: No
  Sender: FDA-Public Use
  Company Number: US-ABBOTT-12P-163-0956847-00

PATIENT
  Age: 66 Year
  Sex: Female

DRUGS (10)
  1. HUMIRA 40 MG/0.8 ML PEN [Suspect]
     Indication: PSORIATIC ARTHROPATHY
     Route: 058
     Dates: start: 20120507
  2. METHOTREXATE [Concomitant]
     Indication: PRODUCT USED FOR UNKNOWN INDICATION
  3. UNKNOWN MUSCLE RELAXER [Concomitant]
     Indication: PAIN
  4. FOLIC ACID [Concomitant]
     Indication: PRODUCT USED FOR UNKNOWN INDICATION
     Dosage: DAILY
  5. SIMVASTATIN [Concomitant]
     Indication: BLOOD CHOLESTEROL
  6. DOXEPIN [Concomitant]
     Indication: PRODUCT USED FOR UNKNOWN INDICATION
     Dosage: 20MG DAILY
  7. TRAMADOL [Concomitant]
     Indication: PAIN
     Dosage: 1 TABLET EVERY 4 HOURS AS NEEDED
  8. PLAVIX [Concomitant]
     Indication: PRODUCT USED FOR UNKNOWN INDICATION
     Dosage: 75MG DAILY
  9. LOSARTIN HCTZ [Concomitant]
     Indication: PRODUCT USED FOR UNKNOWN INDICATION
  10. INSULIN [Concomitant]
     Indication: DIABETES MELLITUS
     Dosage: ONCE DAILY

REACTIONS (3)
  - Urinary tract infection [Recovering/Resolving]
  - Micturition urgency [Recovering/Resolving]
  - Pollakiuria [Recovering/Resolving]
